FAERS Safety Report 9879744 (Version 1)
Quarter: 2014Q1

REPORT INFORMATION
  Report Type: Spontaneous
  Country: US (occurrence: US)
  Receive Date: 20140206
  Receipt Date: 20140206
  Transmission Date: 20141002
  Serious: Yes (Disabling)
  Sender: FDA-Public Use
  Company Number: US-B.I. PHARMACEUTICALS,INC./RIDGEFIELD-2014-BI-04242BP

PATIENT
  Age: 55 Year
  Sex: Female
  Weight: 49 kg

DRUGS (9)
  1. COMBIVENT [Suspect]
     Indication: CHRONIC OBSTRUCTIVE PULMONARY DISEASE
     Route: 055
     Dates: start: 201306
  2. COMBIVENT CFC [Concomitant]
     Indication: CHRONIC OBSTRUCTIVE PULMONARY DISEASE
     Route: 055
  3. CYMBALTA [Concomitant]
     Route: 048
  4. DILAUDID [Concomitant]
     Route: 048
  5. TOPAMAX [Concomitant]
     Route: 048
  6. LASIX [Concomitant]
     Route: 048
  7. MUCINEX [Concomitant]
     Route: 048
  8. PREVACID [Concomitant]
     Route: 048
  9. ATIVAN [Concomitant]
     Route: 048

REACTIONS (3)
  - Monoplegia [Not Recovered/Not Resolved]
  - Physical assault [Recovered/Resolved]
  - Chronic obstructive pulmonary disease [Not Recovered/Not Resolved]
